FAERS Safety Report 8560907-0 (Version None)
Quarter: 2012Q3

REPORT INFORMATION
  Report Type: 
  Country: None (occurrence: None)
  Receive Date: 20120802
  Receipt Date: 20120724
  Transmission Date: 20120928
  Serious: Yes (Hospitalization)
  Sender: FDA-Public Use
  Company Number: CA-BRISTOL-MYERS SQUIBB COMPANY-16692444

PATIENT
  Age: 50 Year
  Sex: Female

DRUGS (4)
  1. WARFARIN [Concomitant]
  2. YERVOY [Suspect]
     Indication: METASTATIC MALIGNANT MELANOMA
     Dosage: LAST INF ON 24MAY2012 INF:2
     Route: 042
     Dates: start: 20120503
  3. FERROUS SULFATE TAB [Concomitant]
  4. DILANTIN [Concomitant]

REACTIONS (1)
  - INTESTINAL OBSTRUCTION [None]
